FAERS Safety Report 6814310-1 (Version None)
Quarter: 2010Q3

REPORT INFORMATION
  Report Type: 
  Country: None (occurrence: None)
  Receive Date: 20100702
  Receipt Date: 20100625
  Transmission Date: 20110219
  Serious: Yes (Hospitalization)
  Sender: FDA-Public Use
  Company Number: FR-ABBOTT-10P-056-0648812-00

PATIENT
  Sex: Male
  Weight: 52 kg

DRUGS (2)
  1. HUMIRA [Suspect]
     Indication: CROHN'S DISEASE
     Dosage: FORM STRENGTH:  40 MICROMOL
     Dates: start: 20100201
  2. TAVANIC [Concomitant]
     Indication: LUNG DISORDER
     Route: 048
     Dates: start: 20100525, end: 20100608

REACTIONS (1)
  - LUNG DISORDER [None]
